FAERS Safety Report 19076641 (Version 1)
Quarter: 2021Q1

REPORT INFORMATION
  Report Type: Spontaneous
  Country: GB (occurrence: GB)
  Receive Date: 20210331
  Receipt Date: 20210331
  Transmission Date: 20210420
  Serious: Yes (Other)
  Sender: FDA-Public Use
  Company Number: GB-DEXPHARM-20210397

PATIENT
  Age: 76 Year
  Sex: Female
  Weight: 97 kg

DRUGS (1)
  1. OMEPRAZOLE SODIUM [Suspect]
     Active Substance: OMEPRAZOLE SODIUM
     Indication: ILL-DEFINED DISORDER
     Dosage: 40MG DAILY
     Route: 048
     Dates: start: 20210208, end: 20210311

REACTIONS (1)
  - Tubulointerstitial nephritis [Unknown]

NARRATIVE: CASE EVENT DATE: 20210208
